FAERS Safety Report 21309144 (Version 2)
Quarter: 2022Q3

REPORT INFORMATION
  Report Type: Spontaneous
  Country: US (occurrence: US)
  Receive Date: 20220908
  Receipt Date: 20220909
  Transmission Date: 20221027
  Serious: Yes (Hospitalization, Other)
  Sender: FDA-Public Use
  Company Number: US-SANOFI-01259119

PATIENT
  Sex: Female

DRUGS (1)
  1. LANTUS SOLOSTAR [Suspect]
     Active Substance: INSULIN GLARGINE
     Indication: Type 1 diabetes mellitus
     Dosage: 11 UNITS IN MORNING AND 8 UNITS AT NIGHT; BID

REACTIONS (3)
  - Blood glucose decreased [Unknown]
  - Cardiac arrest [Unknown]
  - Inappropriate schedule of product administration [Unknown]
